FAERS Safety Report 5308692-X (Version None)
Quarter: 2007Q2

REPORT INFORMATION
  Report Type: 
  Country: None (occurrence: None)
  Receive Date: 20070426
  Receipt Date: 20070420
  Transmission Date: 20071010
  Serious: Yes (Hospitalization, Disabling, Other)
  Sender: FDA-Public Use
  Company Number: BE-GLAXOSMITHKLINE-B0457603A

PATIENT
  Sex: Male
  Weight: 90 kg

DRUGS (6)
  1. LAMOTRIGINE [Suspect]
     Indication: BIPOLAR DISORDER
     Dosage: 200MG PER DAY
     Route: 048
     Dates: start: 20061026, end: 20061212
  2. MANIPREX [Concomitant]
     Dosage: 500MG TWICE PER DAY
     Route: 048
  3. CLOZAPINE [Concomitant]
     Indication: BIPOLAR DISORDER
     Dosage: 25MG TWICE PER DAY
     Route: 048
  4. SIPRALEXA [Concomitant]
     Indication: BIPOLAR DISORDER
     Dosage: 10MG PER DAY
     Route: 048
  5. SANDIMMUNE [Concomitant]
     Indication: BIPOLAR DISORDER
     Dosage: 100MG TWICE PER DAY
     Route: 048
  6. TRANXENE [Concomitant]
     Indication: BIPOLAR DISORDER
     Dosage: 10MG FOUR TIMES PER DAY
     Route: 048

REACTIONS (4)
  - DERMATITIS [None]
  - PSORIASIS [None]
  - SKIN LESION [None]
  - THERMAL BURN [None]
